FAERS Safety Report 14832860 (Version 1)
Quarter: 2018Q2

REPORT INFORMATION
  Report Type: Spontaneous
  Country: FR (occurrence: FR)
  Receive Date: 20180501
  Receipt Date: 20180501
  Transmission Date: 20180711
  Serious: Yes (Other)
  Sender: FDA-Public Use
  Company Number: PHHY2013FR017061

PATIENT
  Age: 30 Year
  Sex: Female

DRUGS (13)
  1. PHENYLEPHRINE [Suspect]
     Active Substance: PHENYLEPHRINE\PHENYLEPHRINE HYDROCHLORIDE
     Indication: BLOOD PRESSURE SYSTOLIC
     Route: 065
  2. OXYTOCINE [Concomitant]
     Indication: PRODUCT USED FOR UNKNOWN INDICATION
     Route: 065
  3. EPHEDRINE. [Suspect]
     Active Substance: EPHEDRINE
     Indication: BLOOD PRESSURE SYSTOLIC
     Dosage: UNK UG, UNK
     Route: 065
  4. TRAMADOL. [Concomitant]
     Active Substance: TRAMADOL
     Indication: PRODUCT USED FOR UNKNOWN INDICATION
     Route: 042
  5. NEOSYNEPHRINE [Concomitant]
     Active Substance: PHENYLEPHRINE HYDROCHLORIDE
     Indication: BLOOD PRESSURE SYSTOLIC
     Route: 042
  6. EPHEDRINE. [Concomitant]
     Active Substance: EPHEDRINE
     Indication: BLOOD PRESSURE SYSTOLIC
     Route: 042
  7. SUFENTANIL [Concomitant]
     Active Substance: SUFENTANIL
     Indication: PRODUCT USED FOR UNKNOWN INDICATION
     Route: 037
  8. SUFENTANIL [Suspect]
     Active Substance: SUFENTANIL
     Indication: SPINAL ANAESTHESIA
     Route: 065
  9. BUPIVACAINE. [Suspect]
     Active Substance: BUPIVACAINE
     Indication: CAESAREAN SECTION
  10. MORPHINE [Suspect]
     Active Substance: MORPHINE
     Indication: SPINAL ANAESTHESIA
     Dosage: 50 UG, UNK
     Route: 037
  11. BUPIVACAINE. [Suspect]
     Active Substance: BUPIVACAINE
     Indication: SPINAL ANAESTHESIA
     Dosage: 10 MG, UNK 10 MG OF 0.5% HYPERBARIC BUPIVACAINE()
     Route: 037
  12. PARACETAMOL [Concomitant]
     Active Substance: ACETAMINOPHEN
     Indication: PRODUCT USED FOR UNKNOWN INDICATION
     Route: 042
  13. AMPICILLINE [Concomitant]
     Indication: PRODUCT USED FOR UNKNOWN INDICATION
     Route: 065

REACTIONS (8)
  - Somnolence [Recovered/Resolved]
  - Vomiting [Recovered/Resolved]
  - Chills [Recovered/Resolved]
  - Hypothermia [Recovered/Resolved]
  - Feeling hot [Recovered/Resolved]
  - Exposure during pregnancy [Unknown]
  - Oxygen saturation decreased [Recovered/Resolved]
  - Nausea [Recovered/Resolved]
